FAERS Safety Report 22595709 (Version 1)
Quarter: 2023Q2

REPORT INFORMATION
  Report Type: Spontaneous
  Country: US (occurrence: None)
  Receive Date: 20230612
  Receipt Date: 20230612
  Transmission Date: 20230721
  Serious: No
  Sender: FDA-Public Use
  Company Number: None

PATIENT
  Sex: Female

DRUGS (1)
  1. KESIMPTA [Suspect]
     Active Substance: OFATUMUMAB
     Route: 058

REACTIONS (7)
  - Muscular weakness [None]
  - Back pain [None]
  - Chapped lips [None]
  - Gait disturbance [None]
  - Dysstasia [None]
  - Cough [None]
  - Oropharyngeal pain [None]
